FAERS Safety Report 16928053 (Version 1)
Quarter: 2019Q4

REPORT INFORMATION
  Report Type: Spontaneous
  Country: CA (occurrence: CA)
  Receive Date: 20191017
  Receipt Date: 20191017
  Transmission Date: 20200122
  Serious: Yes (Death, Life-Threatening, Other)
  Sender: FDA-Public Use
  Company Number: CA-CHEPLA-C20192574_09

PATIENT
  Age: 50 Year
  Sex: Female

DRUGS (5)
  1. GANCICLOVIR. [Suspect]
     Active Substance: GANCICLOVIR
     Indication: ANTIVIRAL PROPHYLAXIS
     Dosage: 5 MG/KG IV DAILY
     Route: 042
  2. GANCICLOVIR. [Suspect]
     Active Substance: GANCICLOVIR
     Indication: CYTOMEGALOVIRUS INFECTION
  3. LEFLUNOMIDE. [Suspect]
     Active Substance: LEFLUNOMIDE
  4. VALGANCICLOVIR. [Suspect]
     Active Substance: VALGANCICLOVIR
     Indication: ANTIVIRAL PROPHYLAXIS
  5. FOSCARNET [Suspect]
     Active Substance: FOSCARNET

REACTIONS (2)
  - Cytomegalovirus viraemia [Fatal]
  - Pathogen resistance [Fatal]
